FAERS Safety Report 6867520-1 (Version None)
Quarter: 2010Q3

REPORT INFORMATION
  Report Type: 
  Country: None (occurrence: None)
  Receive Date: 20100722
  Receipt Date: 20100712
  Transmission Date: 20110219
  Serious: Yes (Hospitalization, Other)
  Sender: FDA-Public Use
  Company Number: US-CELGENEUS-163-21880-10061866

PATIENT
  Sex: Male

DRUGS (3)
  1. REVLIMID [Suspect]
     Route: 048
     Dates: start: 20090401, end: 20100616
  2. ANTICOAGULANTS [Concomitant]
     Indication: PROPHYLAXIS
     Route: 065
  3. STEROIDS [Concomitant]
     Indication: PRODUCT USED FOR UNKNOWN INDICATION
     Route: 065

REACTIONS (4)
  - DEEP VEIN THROMBOSIS [None]
  - DIABETES MELLITUS [None]
  - PULMONARY EMBOLISM [None]
  - SPLENOMEGALY [None]
